FAERS Safety Report 18633747 (Version 1)
Quarter: 2020Q4

REPORT INFORMATION
  Report Type: Report from Study
  Country: US (occurrence: US)
  Receive Date: 20201218
  Receipt Date: 20201218
  Transmission Date: 20210114
  Serious: Yes (Hospitalization, Other)
  Sender: FDA-Public Use
  Company Number: US-BRISTOL-MYERS SQUIBB COMPANY-BMS-2020-101796

PATIENT
  Age: 71 Year
  Sex: Female
  Weight: 68.9 kg

DRUGS (3)
  1. ABATACEPT [Suspect]
     Active Substance: ABATACEPT
     Dosage: 10 MILLIGRAM/KILOGRAM
     Route: 065
     Dates: start: 20200924
  2. ABATACEPT [Suspect]
     Active Substance: ABATACEPT
     Dosage: 10 MILLIGRAM/KILOGRAM
     Route: 065
     Dates: start: 20201009
  3. ABATACEPT [Suspect]
     Active Substance: ABATACEPT
     Indication: CHRONIC GRAFT VERSUS HOST DISEASE
     Dosage: 10 MILLIGRAM/KILOGRAM
     Route: 065
     Dates: start: 20200911

REACTIONS (1)
  - Cystitis klebsiella [Not Recovered/Not Resolved]

NARRATIVE: CASE EVENT DATE: 20201127
